FAERS Safety Report 25961703 (Version 1)
Quarter: 2025Q4

REPORT INFORMATION
  Report Type: Spontaneous
  Country: US (occurrence: US)
  Receive Date: 20251027
  Receipt Date: 20251027
  Transmission Date: 20260118
  Serious: No
  Sender: BIONPHARMA INC.
  Company Number: US-Bion-015286

PATIENT
  Sex: Female

DRUGS (1)
  1. LOPERAMIDE HYDROCHLORIDE [Suspect]
     Active Substance: LOPERAMIDE HYDROCHLORIDE
     Indication: Diarrhoea
     Dosage: APPROXIMATELY 20 YEARS AGO, PATIENT STARTED USING IT (FOLLOWED INSTRUCTIONS)
     Route: 048

REACTIONS (1)
  - Dyspepsia [Recovering/Resolving]
